FAERS Safety Report 25509523 (Version 1)
Quarter: 2025Q3

REPORT INFORMATION
  Report Type: Spontaneous
  Country: US (occurrence: None)
  Receive Date: 20250703
  Receipt Date: 20250703
  Transmission Date: 20251021
  Serious: Yes (Hospitalization)
  Sender: FDA-CTU
  Company Number: None

PATIENT
  Age: 73 Year
  Sex: Male
  Weight: 78 kg

DRUGS (4)
  1. FLUOROURACIL [Suspect]
     Active Substance: FLUOROURACIL
     Dates: end: 20250401
  2. CAMPTOSAR [Suspect]
     Active Substance: IRINOTECAN HYDROCHLORIDE
     Dates: end: 20250401
  3. LEUCOVORIN CALCIUM [Suspect]
     Active Substance: LEUCOVORIN CALCIUM
     Dates: end: 20250401
  4. NIVOLUMAB [Suspect]
     Active Substance: NIVOLUMAB
     Dates: end: 20241231

REACTIONS (13)
  - Pulmonary embolism [None]
  - Pneumocystis jirovecii pneumonia [None]
  - Interstitial lung disease [None]
  - Pulmonary alveolar haemorrhage [None]
  - Respiratory failure [None]
  - Pneumonia [None]
  - Hypervolaemia [None]
  - Sepsis [None]
  - Deep vein thrombosis [None]
  - Metabolic acidosis [None]
  - Thrombocytopenia [None]
  - Atrial flutter [None]
  - Acute myocardial infarction [None]

NARRATIVE: CASE EVENT DATE: 20250415
